FAERS Safety Report 11089367 (Version 1)
Quarter: 2015Q2

REPORT INFORMATION
  Report Type: Spontaneous
  Country: US (occurrence: None)
  Receive Date: 20150504
  Receipt Date: 20150504
  Transmission Date: 20150821
  Serious: No
  Sender: FDA-Public Use
  Company Number: None

PATIENT
  Age: 72 Year
  Sex: Male

DRUGS (1)
  1. SUTENT [Suspect]
     Active Substance: SUNITINIB MALATE
     Dosage: 37.5 MG, UD, PO
     Route: 048
     Dates: start: 20140501

REACTIONS (3)
  - Visual impairment [None]
  - Miosis [None]
  - Drug interaction [None]

NARRATIVE: CASE EVENT DATE: 20150427
